FAERS Safety Report 18610411 (Version 1)
Quarter: 2020Q4

REPORT INFORMATION
  Report Type: Spontaneous
  Country: JP (occurrence: JP)
  Receive Date: 20201214
  Receipt Date: 20201214
  Transmission Date: 20210114
  Serious: Yes (Other)
  Sender: FDA-Public Use
  Company Number: JP-GLAXOSMITHKLINE-JP2020JPN242702

PATIENT
  Age: 72 Year
  Sex: Male

DRUGS (8)
  1. CEFCAPENE PIVOXIL HYDROCHLORIDE HYDRATE [Suspect]
     Active Substance: CEFCAPENE PIVOXIL HYDROCHLORIDE HYDRATE
     Indication: ERYTHEMA MULTIFORME
     Dosage: UNK
  2. DABIGATRAN ETEXILATE METHANESULFONATE [Concomitant]
     Active Substance: DABIGATRAN
     Dosage: UNK
  3. FLUTIDE [FLUTICASONE PROPIONATE] [Suspect]
     Active Substance: FLUTICASONE PROPIONATE
     Dosage: UNK
     Route: 055
  4. ZYLORIC [Suspect]
     Active Substance: ALLOPURINOL
     Dosage: UNK
     Route: 048
  5. THEOPHYLLINE [Concomitant]
     Active Substance: THEOPHYLLINE ANHYDROUS
     Dosage: UNK
  6. LEVOFLOXACIN HEMIHYDRATE [Suspect]
     Active Substance: LEVOFLOXACIN
     Indication: ERYTHEMA MULTIFORME
     Dosage: UNK
  7. PRANLUKAST HYDRATE [Concomitant]
     Active Substance: PRANLUKAST HEMIHYDRATE
     Dosage: UNK
  8. LIMAPROST ALFADEX [Concomitant]
     Active Substance: LIMAPROST
     Dosage: UNK

REACTIONS (7)
  - Subcutaneous abscess [Recovering/Resolving]
  - Erythema multiforme [Recovering/Resolving]
  - Fall [Unknown]
  - Superinfection [Unknown]
  - Candida infection [Recovering/Resolving]
  - Infection susceptibility increased [Unknown]
  - Contusion [Unknown]
